FAERS Safety Report 7274792-0 (Version None)
Quarter: 2011Q1

REPORT INFORMATION
  Report Type: 
  Country: None (occurrence: None)
  Receive Date: 20110204
  Receipt Date: 20101229
  Transmission Date: 20110831
  Serious: No
  Sender: FDA-Public Use
  Company Number: US-TYCO HEALTHCARE/MALLINCKRODT-T201002494

PATIENT
  Age: 53 Year
  Sex: Female

DRUGS (8)
  1. SIMVASTATIN [Concomitant]
     Indication: BLOOD CHOLESTEROL INCREASED
  2. FENTANYL CITRATE [Suspect]
     Indication: PAIN
     Dosage: 12- 600 MCG IN 24 HRS
  3. OXYCONTIN [Concomitant]
     Indication: BREAKTHROUGH PAIN
     Dosage: 240 MG, QD
  4. PREVACID [Concomitant]
     Dosage: UNK
  5. LEXAPRO [Concomitant]
     Dosage: UNK
  6. VALTREX [Concomitant]
     Indication: ORAL HERPES
     Dosage: UNK
  7. ASTEPRO [Concomitant]
     Dosage: UNK
  8. ATIVAN [Concomitant]
     Indication: SLEEP DISORDER
     Dosage: UNK, QHS

REACTIONS (2)
  - HEADACHE [None]
  - NAUSEA [None]
